FAERS Safety Report 13579608 (Version 4)
Quarter: 2017Q4

REPORT INFORMATION
  Report Type: Report from Study
  Country: US (occurrence: US)
  Receive Date: 20170525
  Receipt Date: 20171003
  Transmission Date: 20180320
  Serious: Yes (Other)
  Sender: FDA-Public Use
  Company Number: US-AMGEN-USASL2017076795

PATIENT
  Age: 68 Year
  Sex: Female

DRUGS (2)
  1. REPATHA [Suspect]
     Active Substance: EVOLOCUMAB
     Indication: METABOLIC SYNDROME
     Dosage: 420 MG, QMO
     Route: 065
  2. REPATHA [Suspect]
     Active Substance: EVOLOCUMAB
     Indication: BLOOD CHOLESTEROL ABNORMAL

REACTIONS (5)
  - Gastric bypass [Unknown]
  - Blood cholesterol increased [Recovered/Resolved]
  - Road traffic accident [Unknown]
  - Type 2 diabetes mellitus [Unknown]
  - Limb operation [Unknown]

NARRATIVE: CASE EVENT DATE: 2015
